FAERS Safety Report 9415717 (Version 2)
Quarter: 2013Q3

REPORT INFORMATION
  Report Type: Report from Study
  Country: US (occurrence: US)
  Receive Date: 20130723
  Receipt Date: 20130725
  Transmission Date: 20140515
  Serious: Yes (Death)
  Sender: FDA-Public Use
  Company Number: US-ROCHE-1252419

PATIENT
  Age: 73 Year
  Sex: Male

DRUGS (1)
  1. CELLCEPT [Suspect]
     Indication: LIVER TRANSPLANT
     Route: 048

REACTIONS (1)
  - Cerebrovascular accident [Fatal]
